FAERS Safety Report 6554366-7 (Version None)
Quarter: 2010Q1

REPORT INFORMATION
  Report Type: 
  Country: None (occurrence: None)
  Receive Date: 20100127
  Receipt Date: 20100118
  Transmission Date: 20100710
  Serious: Yes (Hospitalization)
  Sender: FDA-Public Use
  Company Number: B0624853A

PATIENT
  Sex: Female

DRUGS (5)
  1. LAPATINIB [Suspect]
     Indication: BREAST CANCER
     Dosage: 1500MG PER DAY
     Route: 048
     Dates: start: 20081120
  2. PACLITAXEL [Suspect]
     Indication: BREAST CANCER
     Dosage: 80MGM2 WEEKLY
     Route: 042
     Dates: start: 20091230
  3. FLUOROURACIL [Concomitant]
     Dates: start: 20090603
  4. EPIRUBICIN [Concomitant]
     Dates: start: 20090603
  5. CYCLOPHOSPHAMIDE [Concomitant]
     Dates: start: 20090603

REACTIONS (1)
  - SEROMA [None]
